FAERS Safety Report 4490724-2 (Version None)
Quarter: 2004Q4

REPORT INFORMATION
  Report Type: 
  Country: None (occurrence: None)
  Receive Date: 20041027
  Receipt Date: 20041012
  Transmission Date: 20050328
  Serious: Yes (Hospitalization)
  Sender: FDA-Public Use
  Company Number: 239944

PATIENT
  Age: 28 Year
  Sex: Male

DRUGS (2)
  1. NOVOSEVEN [Suspect]
     Indication: HAEMOPHILIA A WITH ANTI FACTOR VIII
     Dosage: SEE IMAGE
  2. PROFILNINE (FACTOR IX COMPLEX HUMAN) [Suspect]

REACTIONS (2)
  - DEEP VEIN THROMBOSIS [None]
  - MUSCLE HAEMORRHAGE [None]
